FAERS Safety Report 12496012 (Version 2)
Quarter: 2016Q2

REPORT INFORMATION
  Report Type: Spontaneous
  Country: ES (occurrence: ES)
  Receive Date: 20160624
  Receipt Date: 20160629
  Transmission Date: 20160815
  Serious: Yes (Death, Other)
  Sender: FDA-Public Use
  Company Number: ES-ASTELLAS-2016US023780

PATIENT
  Age: 58 Year
  Sex: Male

DRUGS (3)
  1. BASILIXIMAB [Concomitant]
     Active Substance: BASILIXIMAB
     Indication: HEART TRANSPLANT
     Dosage: 1 DF, UNKNOWN FREQ. (AT THE FIRST DAY)
     Route: 065
  2. MYCOPHENOLATE MOFETIL. [Concomitant]
     Active Substance: MYCOPHENOLATE MOFETIL
     Indication: HEART TRANSPLANT
     Dosage: UNK UNK, UNKNOWN FREQ., FROM THE BEGINNING
     Route: 065
  3. TACROLIMUS. [Suspect]
     Active Substance: TACROLIMUS
     Indication: HEART TRANSPLANT
     Dosage: UNK UNK, UNKNOWN FREQ., STARTED THE 14TH DAY
     Route: 065

REACTIONS (5)
  - Atelectasis [Unknown]
  - Septic shock [Unknown]
  - Respiratory distress [Unknown]
  - Death [Fatal]
  - Acute kidney injury [Unknown]
